FAERS Safety Report 5082799-7 (Version None)
Quarter: 2006Q3

REPORT INFORMATION
  Report Type: 
  Country: None (occurrence: None)
  Receive Date: 20060816
  Receipt Date: 20060816
  Transmission Date: 20061208
  Serious: Yes (Other)
  Sender: FDA-Public Use
  Company Number: None

PATIENT
  Sex: Female
  Weight: 65.7716 kg

DRUGS (2)
  1. LEVAQUIN [Suspect]
     Indication: PNEUMONIA
     Dosage: 1 TABLET   ONCE DAILY   PO
     Route: 048
  2. LEVAQUIN [Suspect]
     Indication: BRONCHITIS
     Dosage: 1 TABLET     ONCE DAILY   PO
     Route: 048

REACTIONS (5)
  - BLOOD PRESSURE DECREASED [None]
  - BRONCHITIS [None]
  - COLITIS [None]
  - NAUSEA [None]
  - URTICARIA [None]
